FAERS Safety Report 8181846-3 (Version None)
Quarter: 2012Q1

REPORT INFORMATION
  Report Type: 
  Country: None (occurrence: None)
  Receive Date: 20120302
  Receipt Date: 20120228
  Transmission Date: 20120608
  Serious: Yes (Death, Hospitalization)
  Sender: FDA-Public Use
  Company Number: PL-ROCHE-1033085

PATIENT
  Age: 59 Year
  Sex: Male
  Weight: 79.2 kg

DRUGS (1)
  1. VEMURAFENIB [Suspect]
     Indication: METASTATIC MALIGNANT MELANOMA
     Route: 048
     Dates: start: 20120110, end: 20120118

REACTIONS (13)
  - RED BLOOD CELL COUNT DECREASED [None]
  - MULTI-ORGAN FAILURE [None]
  - EASTERN COOPERATIVE ONCOLOGY GROUP PERFORMANCE STATUS WORSENED [None]
  - DYSPNOEA [None]
  - PCO2 DECREASED [None]
  - CARDIAC ARREST [None]
  - BLOOD PH DECREASED [None]
  - OEDEMA PERIPHERAL [None]
  - BLOOD GLUCOSE DECREASED [None]
  - HAEMOGLOBIN DECREASED [None]
  - BLOOD ALKALINE PHOSPHATASE INCREASED [None]
  - HAEMATOCRIT DECREASED [None]
  - FIBRIN D DIMER INCREASED [None]
